FAERS Safety Report 6587733-6 (Version None)
Quarter: 2010Q1

REPORT INFORMATION
  Report Type: 
  Country: None (occurrence: None)
  Receive Date: 20100218
  Receipt Date: 20100203
  Transmission Date: 20100710
  Serious: Yes (Hospitalization)
  Sender: FDA-Public Use
  Company Number: NL-MEDIMMUNE-MEDI-0010501

PATIENT
  Sex: Male

DRUGS (2)
  1. SYNAGIS [Suspect]
     Route: 030
     Dates: start: 20090914, end: 20100105
  2. SYNAGIS [Suspect]
     Route: 030
     Dates: start: 20100202, end: 20100202

REACTIONS (3)
  - COUGH [None]
  - RHINORRHOEA [None]
  - VIRAL INFECTION [None]
